FAERS Safety Report 10662035 (Version 1)
Quarter: 2014Q4

REPORT INFORMATION
  Report Type: Spontaneous
  Country: US (occurrence: US)
  Receive Date: 20141218
  Receipt Date: 20141218
  Transmission Date: 20150529
  Serious: Yes (Other)
  Sender: FDA-Public Use
  Company Number: US-DSJP-DSU-2014-132760

PATIENT

DRUGS (1)
  1. BENICAR [Suspect]
     Active Substance: OLMESARTAN MEDOXOMIL
     Indication: HYPERTENSION
     Dosage: 40 MG, QD
     Route: 048
     Dates: start: 2010

REACTIONS (3)
  - Cerebrovascular accident [Not Recovered/Not Resolved]
  - Diverticulitis [Recovering/Resolving]
  - Malabsorption [Not Recovered/Not Resolved]

NARRATIVE: CASE EVENT DATE: 2010
